FAERS Safety Report 5340526-X (Version None)
Quarter: 2007Q2

REPORT INFORMATION
  Report Type: 
  Country: None (occurrence: None)
  Receive Date: 20070531
  Receipt Date: 20070521
  Transmission Date: 20071010
  Serious: Yes (Other)
  Sender: FDA-Public Use
  Company Number: FR-PFIZER INC-2006033223

PATIENT
  Sex: Male
  Weight: 65 kg

DRUGS (5)
  1. ZITHROMAX [Suspect]
     Indication: MYCOPLASMA INFECTION
     Route: 048
     Dates: start: 20060125, end: 20060206
  2. ZITHROMAX [Suspect]
     Indication: PNEUMONIA MYCOPLASMAL
  3. AMOXICILLIN [Concomitant]
     Route: 048
     Dates: start: 20060114, end: 20060124
  4. AUGMENTIN '125' [Concomitant]
     Route: 048
     Dates: start: 20060120, end: 20060124
  5. TRAMADOL HCL [Concomitant]
     Route: 048
     Dates: start: 20060126, end: 20060127

REACTIONS (6)
  - ANAEMIA [None]
  - NAUSEA [None]
  - VERTIGO [None]
  - VISUAL ACUITY REDUCED [None]
  - VITREOUS DETACHMENT [None]
  - VOMITING [None]
